FAERS Safety Report 19447848 (Version 2)
Quarter: 2021Q2

REPORT INFORMATION
  Report Type: Spontaneous
  Country: JP (occurrence: JP)
  Receive Date: 20210622
  Receipt Date: 20210623
  Transmission Date: 20210717
  Serious: Yes (Hospitalization)
  Sender: FDA-Public Use
  Company Number: JP-JNJFOC-20210644734

PATIENT
  Age: 54 Year
  Sex: Male
  Weight: 73 kg

DRUGS (1)
  1. MINOXIDIL. [Suspect]
     Active Substance: MINOXIDIL
     Indication: ANDROGENETIC ALOPECIA
     Dosage: INCREASED THE DOSE FROM ONCE A DAY TO TWICE A DAY FROM A MONTH BEFORE
     Route: 062
     Dates: end: 20210605

REACTIONS (1)
  - Atrioventricular block complete [Recovered/Resolved]
